FAERS Safety Report 7707199-X (Version None)
Quarter: 2011Q3

REPORT INFORMATION
  Report Type: 
  Country: None (occurrence: None)
  Receive Date: 20110824
  Receipt Date: 20110809
  Transmission Date: 20111222
  Serious: Yes (Other)
  Sender: FDA-Public Use
  Company Number: PHHY2011US23272

PATIENT
  Sex: Male
  Weight: 76.19 kg

DRUGS (3)
  1. PRAVACHOL [Concomitant]
     Indication: HYPERLIPIDAEMIA
     Dosage: 40 MG, DAILY
  2. TARKA [Concomitant]
     Dosage: UNK UKN, UNK
  3. DIOVAN [Suspect]
     Indication: HYPERTENSION
     Dosage: 160 MG, QD
     Route: 048

REACTIONS (12)
  - LOSS OF CONSCIOUSNESS [None]
  - HYPOTENSION [None]
  - RENAL CYST [None]
  - HYPERHIDROSIS [None]
  - HEART RATE INCREASED [None]
  - HEART RATE DECREASED [None]
  - DIARRHOEA [None]
  - MEDICATION ERROR [None]
  - PROTEINURIA [None]
  - MICROALBUMINURIA [None]
  - PULMONARY OEDEMA [None]
  - MALAISE [None]
